FAERS Safety Report 14418294 (Version 1)
Quarter: 2018Q1

REPORT INFORMATION
  Report Type: Spontaneous
  Country: US (occurrence: US)
  Receive Date: 20180122
  Receipt Date: 20180122
  Transmission Date: 20180509
  Serious: No
  Sender: FDA-Public Use
  Company Number: US-INTERCEPT-PMOCA2017001324

PATIENT

DRUGS (4)
  1. ASPIRIN. [Concomitant]
     Active Substance: ASPIRIN
  2. OCALIVA [Suspect]
     Active Substance: OBETICHOLIC ACID
     Indication: PRIMARY BILIARY CHOLANGITIS
     Dosage: 5 MG, QD
     Route: 048
     Dates: start: 20170810
  3. VITAMIN D [Concomitant]
     Active Substance: CHOLECALCIFEROL
  4. URSODIOL. [Concomitant]
     Active Substance: URSODIOL

REACTIONS (3)
  - Bowel movement irregularity [Unknown]
  - Fatigue [Unknown]
  - Alopecia [Unknown]
